FAERS Safety Report 7139131-4 (Version None)
Quarter: 2010Q4

REPORT INFORMATION
  Report Type: 
  Country: None (occurrence: None)
  Receive Date: 20101206
  Receipt Date: 20101123
  Transmission Date: 20110411
  Serious: Yes (Hospitalization)
  Sender: FDA-Public Use
  Company Number: PHHY2010US59124

PATIENT
  Sex: Female
  Weight: 145 kg

DRUGS (5)
  1. FEMARA [Suspect]
     Indication: BREAST CANCER
     Dosage: 2.5 MG DAILY
     Route: 048
     Dates: start: 20100315, end: 20100907
  2. FEMARA [Suspect]
     Route: 048
  3. HYDROCHLOROTHIAZDE TAB [Concomitant]
  4. STARLIX [Concomitant]
     Dosage: 20 MG, UNK
     Route: 048
  5. ACTOS [Concomitant]
     Dosage: 15 MG, UNK
     Route: 048

REACTIONS (1)
  - KNEE ARTHROPLASTY [None]
